FAERS Safety Report 6885165-4 (Version None)
Quarter: 2010Q3

REPORT INFORMATION
  Report Type: 
  Country: None (occurrence: None)
  Receive Date: 20100729
  Receipt Date: 20071218
  Transmission Date: 20110219
  Serious: No
  Sender: FDA-Public Use
  Company Number: US-PFIZER INC-2007091195

PATIENT
  Sex: Female

DRUGS (10)
  1. CELEBREX [Suspect]
     Indication: OSTEOARTHRITIS
     Dates: start: 20070917
  2. NIFEDIPINE [Concomitant]
  3. LISINOPRIL [Concomitant]
  4. COZAAR [Concomitant]
  5. CLONIDINE [Concomitant]
  6. ALDACTAZIDE-A [Concomitant]
  7. HYDRALAZINE HCL [Concomitant]
  8. METOPROLOL TARTRATE [Concomitant]
  9. METFORMIN HCL [Concomitant]
  10. TRAMADOL HYDROCHLORIDE [Concomitant]

REACTIONS (1)
  - HYPERGLYCAEMIA [None]
